FAERS Safety Report 16710769 (Version 13)
Quarter: 2020Q2

REPORT INFORMATION
  Report Type: Spontaneous
  Country: DE (occurrence: DE)
  Receive Date: 20190816
  Receipt Date: 20200519
  Transmission Date: 20200713
  Serious: Yes (Other)
  Sender: FDA-Public Use
  Company Number: DE-ASTRAZENECA-2019SF17234

PATIENT
  Sex: Female

DRUGS (24)
  1. QUENSYL [Suspect]
     Active Substance: HYDROXYCHLOROQUINE
     Route: 065
  2. OMEPRAZOLE. [Suspect]
     Active Substance: OMEPRAZOLE
     Route: 048
  3. RAMIPRIL. [Suspect]
     Active Substance: RAMIPRIL
     Dosage: 1 DF, 2X/DAY (1 - 0 - 1); 1 NUMBER OF UNITS IN THE INTERVAL: 12 DEFINITION OF THE INTERVAL: HOUR
     Route: 048
  4. SILDENAFIL CITRATE. [Suspect]
     Active Substance: SILDENAFIL CITRATE
     Indication: PULMONARY HYPERTENSION
     Route: 065
  5. VOLIBRIS [Suspect]
     Active Substance: AMBRISENTAN
     Indication: GOUT
     Route: 065
  6. VOLIBRIS [Suspect]
     Active Substance: AMBRISENTAN
     Indication: GOUT
     Route: 048
  7. ROACTEMRA [Suspect]
     Active Substance: TOCILIZUMAB
     Indication: RHEUMATOID ARTHRITIS
     Route: 058
     Dates: start: 20190118, end: 2019
  8. SPASMOLYT [Suspect]
     Active Substance: TROSPIUM CHLORIDE
     Route: 065
  9. SPASMOLYT [Suspect]
     Active Substance: TROSPIUM CHLORIDE
     Route: 065
  10. VOLIBRIS [Suspect]
     Active Substance: AMBRISENTAN
     Indication: PULMONARY HYPERTENSION
     Route: 065
  11. SPASMOLYT [Suspect]
     Active Substance: TROSPIUM CHLORIDE
     Route: 065
  12. OMEPRAZOLE. [Suspect]
     Active Substance: OMEPRAZOLE
     Route: 048
  13. QUENSYL [Suspect]
     Active Substance: HYDROXYCHLOROQUINE
     Route: 065
  14. SPASMOLYT [Suspect]
     Active Substance: TROSPIUM CHLORIDE
     Route: 065
  15. VOLIBRIS [Suspect]
     Active Substance: AMBRISENTAN
     Indication: PULMONARY HYPERTENSION
     Route: 065
  16. ELIQUIS [Suspect]
     Active Substance: APIXABAN
     Indication: PRODUCT USED FOR UNKNOWN INDICATION
     Route: 065
  17. PREGABALIN. [Suspect]
     Active Substance: PREGABALIN
     Route: 065
  18. VOLIBRIS [Suspect]
     Active Substance: AMBRISENTAN
     Indication: GOUT
     Route: 065
  19. LYRICA [Suspect]
     Active Substance: PREGABALIN
     Route: 065
  20. PREGABALIN. [Suspect]
     Active Substance: PREGABALIN
     Route: 065
  21. RAMIPRIL. [Suspect]
     Active Substance: RAMIPRIL
     Route: 048
  22. VOLIBRIS [Suspect]
     Active Substance: AMBRISENTAN
     Indication: PULMONARY HYPERTENSION
     Route: 048
  23. ELIQUIS [Suspect]
     Active Substance: APIXABAN
     Indication: PRODUCT USED FOR UNKNOWN INDICATION
     Route: 065
  24. ROACTEMRA [Suspect]
     Active Substance: TOCILIZUMAB
     Indication: RHEUMATOID ARTHRITIS
     Route: 058
     Dates: start: 20190118, end: 2019

REACTIONS (11)
  - Peripheral coldness [Recovered/Resolved]
  - Ligament sprain [Recovering/Resolving]
  - Arthropathy [Unknown]
  - Pulmonary hypertension [Recovering/Resolving]
  - Arthralgia [Not Recovered/Not Resolved]
  - Paraesthesia [Recovered/Resolved]
  - Therapeutic product effect incomplete [Unknown]
  - Visual impairment [Not Recovered/Not Resolved]
  - Pain in extremity [Recovered/Resolved]
  - Oedema peripheral [Recovered/Resolved]
  - Nasopharyngitis [Recovered/Resolved]

NARRATIVE: CASE EVENT DATE: 2018
